FAERS Safety Report 8585548-0 (Version None)
Quarter: 2012Q3

REPORT INFORMATION
  Report Type: 
  Country: None (occurrence: None)
  Receive Date: 20120810
  Receipt Date: 20120806
  Transmission Date: 20120928
  Serious: Yes (Hospitalization)
  Sender: FDA-Public Use
  Company Number: BR-ELI_LILLY_AND_COMPANY-BR201208001846

PATIENT
  Sex: Female
  Weight: 63 kg

DRUGS (9)
  1. HUMULIN R [Suspect]
     Indication: TYPE 2 DIABETES MELLITUS
     Dosage: UNK, UNKNOWN
     Route: 058
  2. HUMULIN N [Suspect]
     Dosage: 20 IU, EACH EVENING
     Route: 058
     Dates: start: 20120101
  3. AMLODIPINE BESYLATE [Concomitant]
     Dosage: 5 MG, BID
     Route: 065
  4. ROSUVASTATIN [Concomitant]
     Indication: BLOOD CHOLESTEROL
     Dosage: 10 MG, UNKNOWN
     Route: 065
  5. HUMULIN N [Suspect]
     Indication: TYPE 2 DIABETES MELLITUS
     Dosage: 26 IU, EACH MORNING
     Route: 058
     Dates: start: 20120101
  6. HUMALOG [Suspect]
     Indication: TYPE 2 DIABETES MELLITUS
     Dosage: UNK, UNKNOWN
     Route: 058
  7. HUMULIN N [Suspect]
     Dosage: 24 IU, OTHER
     Route: 058
     Dates: start: 20120101
  8. AMLODIPINE BESYLATE [Concomitant]
     Dosage: 5 MG, QD
     Route: 065
  9. HYDROCHLOROTHIAZIDE [Concomitant]
     Indication: FLUID RETENTION
     Dosage: 50 MG, QD
     Route: 065

REACTIONS (8)
  - MALAISE [None]
  - BLOOD GLUCOSE ABNORMAL [None]
  - BLOOD GLUCOSE INCREASED [None]
  - ARRHYTHMIA [None]
  - DYSPNOEA [None]
  - FATIGUE [None]
  - INJECTION SITE PAIN [None]
  - BLOOD PRESSURE DECREASED [None]
